FAERS Safety Report 5841137-X (Version None)
Quarter: 2008Q3

REPORT INFORMATION
  Report Type: 
  Country: None (occurrence: None)
  Receive Date: 20080811
  Receipt Date: 20080811
  Transmission Date: 20090109
  Serious: Yes (Hospitalization)
  Sender: FDA-Public Use
  Company Number: None

PATIENT
  Sex: Female
  Weight: 3.4 kg

DRUGS (3)
  1. CARBOPLATIN [Suspect]
     Dosage: 58 MG
  2. ETOPOSIDE [Suspect]
     Dosage: 36 MG
  3. G-CSF (FILGRASTIM, AMGEN) [Suspect]
     Dosage: 105 MCG

REACTIONS (3)
  - HYPOTENSION [None]
  - MECHANICAL VENTILATION COMPLICATION [None]
  - METABOLIC ACIDOSIS [None]
